FAERS Safety Report 19246382 (Version 1)
Quarter: 2021Q2

REPORT INFORMATION
  Report Type: Spontaneous
  Country: US (occurrence: US)
  Receive Date: 20210511
  Receipt Date: 20210511
  Transmission Date: 20210717
  Serious: Yes (Other)
  Sender: FDA-Public Use
  Company Number: None

PATIENT
  Age: 54 Year
  Sex: Male
  Weight: 74.25 kg

DRUGS (2)
  1. TEPEZZA [Concomitant]
     Active Substance: TEPROTUMUMAB-TRBW
     Dates: start: 20210507, end: 20210507
  2. TEPEZZA [Suspect]
     Active Substance: TEPROTUMUMAB-TRBW
     Indication: ENDOCRINE OPHTHALMOPATHY
     Dosage: ?          OTHER FREQUENCY:Q3WEEKS;?
     Route: 042
     Dates: start: 20210507, end: 20210507

REACTIONS (1)
  - Herpes virus infection [None]

NARRATIVE: CASE EVENT DATE: 20210507
